FAERS Safety Report 11688179 (Version 1)
Quarter: 2015Q4

REPORT INFORMATION
  Report Type: Report from Study
  Country: FR (occurrence: FR)
  Receive Date: 20151030
  Receipt Date: 20151030
  Transmission Date: 20160304
  Serious: Yes (Hospitalization, Other)
  Sender: FDA-Public Use
  Company Number: FR-ABBVIE-15P-056-1490630-00

PATIENT
  Age: 58 Year
  Sex: Male
  Weight: 61 kg

DRUGS (8)
  1. FUROSEMIDE. [Suspect]
     Active Substance: FUROSEMIDE
     Indication: OEDEMA
     Route: 065
     Dates: start: 20150702
  2. MINISINTROM [Concomitant]
     Active Substance: ACENOCOUMAROL
     Indication: CORONARY ARTERY EMBOLISM
  3. VIEKIRAX [Suspect]
     Active Substance: OMBITASVIR\PARITAPREVIR\RITONAVIR
     Indication: HEPATITIS C
     Dosage: 25/150/100MG, 1 IN 1 D
     Route: 048
     Dates: start: 20150529
  4. EXVIERA [Suspect]
     Active Substance: DASABUVIR
     Indication: HEPATITIS C
     Route: 048
  5. SINTROM [Concomitant]
     Active Substance: ACENOCOUMAROL
     Indication: CORONARY ARTERY EMBOLISM
  6. NEBIVOLOL. [Suspect]
     Active Substance: NEBIVOLOL
     Indication: CARDIAC FAILURE
     Route: 065
  7. RIBAVIRIN. [Suspect]
     Active Substance: RIBAVIRIN
     Indication: HEPATITIS C
     Route: 048
     Dates: start: 20150529, end: 20150702
  8. PERINDOPRIL [Suspect]
     Active Substance: PERINDOPRIL
     Indication: CARDIAC FAILURE
     Route: 065
     Dates: start: 20150702

REACTIONS (9)
  - Bradycardia [Unknown]
  - Hyperkalaemia [Unknown]
  - Faeces discoloured [Unknown]
  - Hypovolaemic shock [Unknown]
  - Acute kidney injury [Unknown]
  - Atrial fibrillation [Unknown]
  - Diarrhoea [Unknown]
  - Normochromic normocytic anaemia [Unknown]
  - Dehydration [Unknown]

NARRATIVE: CASE EVENT DATE: 20150701
